FAERS Safety Report 16130935 (Version 1)
Quarter: 2019Q1

REPORT INFORMATION
  Report Type: Spontaneous
  Country: US (occurrence: US)
  Receive Date: 20190328
  Receipt Date: 20190328
  Transmission Date: 20190418
  Serious: Yes (Death, Other)
  Sender: FDA-Public Use
  Company Number: US-MYLANLABS-2019M1027961

PATIENT
  Age: 61 Year

DRUGS (1)
  1. HEPARIN SODIUM INJECTION USP [Suspect]
     Active Substance: HEPARIN SODIUM
     Indication: ANTICOAGULANT THERAPY
     Dosage: UNK
     Route: 042
     Dates: start: 20180924

REACTIONS (5)
  - Platelet count decreased [Fatal]
  - Product quality issue [Unknown]
  - Pulmonary embolism [Fatal]
  - Metabolic acidosis [Fatal]
  - Drug effect decreased [Unknown]
